FAERS Safety Report 7310767-0 (Version None)
Quarter: 2011Q1

REPORT INFORMATION
  Report Type: 
  Country: None (occurrence: None)
  Receive Date: 20110211
  Receipt Date: 20110207
  Transmission Date: 20110831
  Serious: Yes (Hospitalization, Disabling, Other)
  Sender: FDA-Public Use
  Company Number: 2010SP053033

PATIENT
  Age: 35 Year
  Sex: Female
  Weight: 83.9154 kg

DRUGS (9)
  1. NUVARING [Suspect]
  2. NUVARING [Suspect]
  3. NUVARING [Suspect]
  4. NUVARING [Suspect]
     Indication: CONTRACEPTION
     Dates: start: 20060101, end: 20081001
  5. NUVARING [Suspect]
  6. NUVARING [Suspect]
  7. NUVARING [Suspect]
  8. NUVARING [Suspect]
  9. NUVARING [Suspect]

REACTIONS (36)
  - MIGRAINE [None]
  - IMPAIRED WORK ABILITY [None]
  - COGNITIVE DISORDER [None]
  - INTERVERTEBRAL DISC PROTRUSION [None]
  - JOINT SPRAIN [None]
  - ANXIETY [None]
  - MUSCULAR WEAKNESS [None]
  - THYROID NEOPLASM [None]
  - HEPATIC CYST [None]
  - BLOOD CREATINE PHOSPHOKINASE INCREASED [None]
  - RESPIRATORY DISORDER [None]
  - IMMOBILE [None]
  - PULMONARY EMBOLISM [None]
  - THROMBOSIS [None]
  - MUSCLE STRAIN [None]
  - ACCIDENT AT WORK [None]
  - BLOOD THYROID STIMULATING HORMONE DECREASED [None]
  - RENAL CYST [None]
  - CONVERSION DISORDER [None]
  - CHOLECYSTECTOMY [None]
  - DEPRESSION [None]
  - SPINAL OSTEOARTHRITIS [None]
  - FACTITIOUS DISORDER [None]
  - ADJUSTMENT DISORDER WITH MIXED ANXIETY AND DEPRESSED MOOD [None]
  - DYSPHONIA [None]
  - ASTHENIA [None]
  - MENTAL DISORDER [None]
  - INJURY [None]
  - BRONCHOSPASM [None]
  - VOCAL CORD DISORDER [None]
  - MENSTRUATION IRREGULAR [None]
  - DEEP VEIN THROMBOSIS [None]
  - MOOD SWINGS [None]
  - EMOTIONAL DISORDER [None]
  - MUSCULOSKELETAL CHEST PAIN [None]
  - ARTHROSCOPY [None]
